FAERS Safety Report 5357542-4 (Version None)
Quarter: 2007Q2

REPORT INFORMATION
  Report Type: 
  Country: None (occurrence: None)
  Receive Date: 20070614
  Receipt Date: 20070607
  Transmission Date: 20071010
  Serious: Yes (Hospitalization)
  Sender: FDA-Public Use
  Company Number: JP-ASTRAZENECA-2007AP03173

PATIENT
  Age: 22463 Day
  Sex: Male
  Weight: 61 kg

DRUGS (22)
  1. CRESTOR [Suspect]
     Indication: HYPERCHOLESTEROLAEMIA
     Route: 048
     Dates: start: 20070323, end: 20070517
  2. CRESTOR [Suspect]
     Route: 048
     Dates: start: 20070518, end: 20070525
  3. BUFFERIN [Suspect]
     Indication: THROMBOSIS PROPHYLAXIS
     Route: 048
     Dates: start: 20070227, end: 20070525
  4. TICLOPIDINE HCL [Suspect]
     Indication: THROMBOSIS PROPHYLAXIS
     Route: 048
     Dates: end: 20070525
  5. MUCOSOLVAN [Concomitant]
     Indication: ASTHMA
     Route: 048
     Dates: start: 20070227, end: 20070517
  6. THEO-DUR [Concomitant]
     Indication: ASTHMA
     Route: 048
     Dates: start: 20070227, end: 20070517
  7. HOKUNALIN:TAPE [Concomitant]
     Indication: ASTHMA
     Route: 048
     Dates: start: 20070227, end: 20070517
  8. SINGULAIR [Concomitant]
     Indication: ASTHMA
     Route: 048
     Dates: end: 20070517
  9. NITOROL R [Concomitant]
     Indication: ANGINA PECTORIS
     Route: 048
     Dates: start: 20070227
  10. GLUCOBAY [Concomitant]
     Indication: DIABETES MELLITUS
     Route: 048
     Dates: start: 20070227
  11. GLUFAST [Concomitant]
     Indication: DIABETES MELLITUS
     Route: 048
     Dates: start: 20070227
  12. ADALAT [Concomitant]
     Indication: HYPERTENSION
     Route: 048
  13. BLOPRESS [Concomitant]
     Indication: HYPERTENSION
     Route: 048
  14. LASIX [Concomitant]
     Indication: MYOCARDIAL INFARCTION
     Route: 048
  15. GASTER D [Concomitant]
     Indication: GASTRITIS PROPHYLAXIS
     Route: 048
  16. SIGMART [Concomitant]
     Indication: ANGINA PECTORIS
     Route: 048
  17. MEVALOTIN [Concomitant]
  18. ASPIRIN [Concomitant]
  19. ITOROL [Concomitant]
  20. SEIBULE [Concomitant]
  21. FASTIC [Concomitant]
  22. BANAN [Concomitant]

REACTIONS (1)
  - SUBDURAL HAEMATOMA [None]
